FAERS Safety Report 6697950-2 (Version None)
Quarter: 2010Q2

REPORT INFORMATION
  Report Type: 
  Country: None (occurrence: None)
  Receive Date: 20100427
  Receipt Date: 20100420
  Transmission Date: 20101027
  Serious: No
  Sender: FDA-Public Use
  Company Number: US-BIOGENIDEC-2010BI013600

PATIENT
  Sex: Female

DRUGS (3)
  1. TYSABRI [Suspect]
     Indication: MULTIPLE SCLEROSIS
     Route: 042
     Dates: start: 20080604, end: 20090225
  2. TYSABRI [Suspect]
     Route: 042
     Dates: start: 20090805, end: 20091029
  3. TYSABRI [Suspect]
     Route: 042
     Dates: start: 20100415

REACTIONS (1)
  - MEMORY IMPAIRMENT [None]
